FAERS Safety Report 16470431 (Version 1)
Quarter: 2019Q2

REPORT INFORMATION
  Report Type: Spontaneous
  Country: US (occurrence: US)
  Receive Date: 20190624
  Receipt Date: 20190624
  Transmission Date: 20190711
  Serious: No
  Sender: FDA-Public Use
  Company Number: US-ARRAY-2019-05530

PATIENT

DRUGS (2)
  1. MEKTOVI [Suspect]
     Active Substance: BINIMETINIB
     Indication: MALIGNANT MELANOMA
     Dosage: 45 MG, BID
     Route: 048
     Dates: start: 20190308
  2. BRAFTOVI [Suspect]
     Active Substance: ENCORAFENIB
     Indication: MALIGNANT MELANOMA
     Dosage: UNK

REACTIONS (7)
  - Fatigue [Unknown]
  - Non-cardiac chest pain [Unknown]
  - Sensitive skin [Unknown]
  - Pruritus [Unknown]
  - Skin burning sensation [Unknown]
  - Memory impairment [Unknown]
  - Cough [Unknown]
